FAERS Safety Report 5706628-0 (Version None)
Quarter: 2008Q2

REPORT INFORMATION
  Report Type: 
  Country: None (occurrence: None)
  Receive Date: 20080414
  Receipt Date: 20080128
  Transmission Date: 20081010
  Serious: Yes (Hospitalization)
  Sender: FDA-Public Use
  Company Number: TRP_05638_2008

PATIENT
  Sex: Female
  Weight: 69.8539 kg

DRUGS (8)
  1. RIBAVIRIN [Suspect]
     Indication: HEPATITIS C
     Dosage: (1000 MG ORAL), (1200 MG ORAL)
     Route: 048
     Dates: start: 20070914, end: 20071001
  2. RIBAVIRIN [Suspect]
     Indication: HEPATITIS C
     Dosage: (1000 MG ORAL), (1200 MG ORAL)
     Route: 048
     Dates: start: 20071001
  3. INFERGEN [Suspect]
     Indication: HEPATITIS C
     Dosage: (15 UG QD SUBCUTANEOUS)
     Route: 058
     Dates: start: 20071001, end: 20071129
  4. INFERGEN [Suspect]
     Indication: HEPATITIS C
     Dosage: (9 UG QD SUBCUTANEOUS)
     Route: 058
     Dates: start: 20070914, end: 20071001
  5. HUMALOG [Concomitant]
  6. LANTUS [Concomitant]
  7. ATENOLOL [Concomitant]
  8. LORAZEPAM [Concomitant]

REACTIONS (5)
  - ANAEMIA [None]
  - BLOOD CHLORIDE ABNORMAL [None]
  - BLOOD POTASSIUM ABNORMAL [None]
  - BLOOD SODIUM ABNORMAL [None]
  - ELECTROLYTE IMBALANCE [None]
